FAERS Safety Report 25956368 (Version 1)
Quarter: 2025Q4

REPORT INFORMATION
  Report Type: Spontaneous
  Country: US (occurrence: None)
  Receive Date: 20251024
  Receipt Date: 20251024
  Transmission Date: 20260118
  Serious: Yes (Hospitalization)
  Sender: FDA-CTU
  Company Number: None

PATIENT
  Sex: Male
  Weight: 120.8 kg

DRUGS (2)
  1. TAXOTERE [Suspect]
     Active Substance: DOCETAXEL
     Dates: end: 20250915
  2. GEMCITABINE HYDROCHLORIDE [Suspect]
     Active Substance: GEMCITABINE HYDROCHLORIDE
     Dates: end: 20250915

REACTIONS (22)
  - Fall [None]
  - Buttock injury [None]
  - Head injury [None]
  - Hypoxia [None]
  - Emphysema [None]
  - Blood pressure increased [None]
  - Pelvic fracture [None]
  - Fractured sacrum [None]
  - Retroperitoneal haematoma [None]
  - Unevaluable event [None]
  - Aortic aneurysm [None]
  - Pulmonary oedema [None]
  - Pelvic fracture [None]
  - Acute respiratory failure [None]
  - Acute myocardial infarction [None]
  - Atrial fibrillation [None]
  - Aortic valve stenosis [None]
  - Mitral valve incompetence [None]
  - Interstitial lung disease [None]
  - Cardiomegaly [None]
  - Cardiac failure congestive [None]
  - Atelectasis [None]

NARRATIVE: CASE EVENT DATE: 20251009
